FAERS Safety Report 15293469 (Version 6)
Quarter: 2019Q3

REPORT INFORMATION
  Report Type: Report from Study
  Country: CA (occurrence: CA)
  Receive Date: 20180820
  Receipt Date: 20190916
  Transmission Date: 20191004
  Serious: Yes (Hospitalization, Other)
  Sender: FDA-Public Use
  Company Number: CA-ROCHE-2170573

PATIENT
  Age: 53 Year
  Sex: Female

DRUGS (18)
  1. RITUXAN [Suspect]
     Active Substance: RITUXIMAB
     Dosage: SHE RECEIVED PREVIOUS RITUXIMAB INFUSION ON 15/FEB/2018.
     Route: 042
     Dates: start: 20150323
  2. RITUXAN [Suspect]
     Active Substance: RITUXIMAB
     Dosage: 1 INFUSION ONLY
     Route: 042
     Dates: start: 20161121
  3. PREVACID [Concomitant]
     Active Substance: LANSOPRAZOLE
  4. METHOTREXATE. [Concomitant]
     Active Substance: METHOTREXATE
  5. RITUXAN [Suspect]
     Active Substance: RITUXIMAB
     Indication: VASCULITIS
     Route: 042
     Dates: start: 20140829, end: 20140912
  6. VIT D [Concomitant]
     Active Substance: VITAMIN D NOS
  7. CALCIUM [Concomitant]
     Active Substance: CALCIUM
  8. TYLENOL [Concomitant]
     Active Substance: ACETAMINOPHEN
     Indication: PREMEDICATION
     Route: 048
     Dates: start: 20121210
  9. DIPHENHYDRAMINE. [Concomitant]
     Active Substance: DIPHENHYDRAMINE
     Indication: PREMEDICATION
     Route: 048
     Dates: start: 20121210
  10. RITUXAN [Suspect]
     Active Substance: RITUXIMAB
     Indication: RHEUMATOID ARTHRITIS
     Dosage: DAY 1, 15
     Route: 042
     Dates: start: 20121210, end: 20140214
  11. SOLU-MEDROL [Suspect]
     Active Substance: METHYLPREDNISOLONE SODIUM SUCCINATE
     Indication: PRODUCT USED FOR UNKNOWN INDICATION
     Route: 065
  12. ACETAMINOPHEN. [Concomitant]
     Active Substance: ACETAMINOPHEN
     Indication: PREMEDICATION
     Route: 048
     Dates: start: 20121210
  13. HYDROXYCHLOROQUINE [Concomitant]
     Active Substance: HYDROXYCHLOROQUINE
  14. REACTINE [CETIRIZINE HYDROCHLORIDE] [Concomitant]
     Active Substance: CETIRIZINE HYDROCHLORIDE
  15. CYPROHEPTADINE. [Concomitant]
     Active Substance: CYPROHEPTADINE
  16. FOLIC ACID. [Concomitant]
     Active Substance: FOLIC ACID
  17. BENADRYL [Concomitant]
     Active Substance: DIPHENHYDRAMINE HYDROCHLORIDE
     Indication: PREMEDICATION
     Route: 048
     Dates: start: 20121210
  18. METHYLPREDNISOLONE. [Concomitant]
     Active Substance: METHYLPREDNISOLONE
     Indication: PREMEDICATION
     Route: 042
     Dates: start: 20121210

REACTIONS (12)
  - Ocular hyperaemia [Unknown]
  - Rheumatoid arthritis [Unknown]
  - Off label use [Unknown]
  - Lacrimation increased [Recovered/Resolved]
  - Skin discolouration [Unknown]
  - Pollakiuria [Unknown]
  - Infusion related reaction [Recovered/Resolved]
  - Vasculitis [Unknown]
  - Pericarditis [Recovered/Resolved]
  - Glaucoma [Recovered/Resolved]
  - Product use issue [Unknown]
  - Infusion related reaction [Recovered/Resolved]

NARRATIVE: CASE EVENT DATE: 20180219
